FAERS Safety Report 19154798 (Version 1)
Quarter: 2021Q2

REPORT INFORMATION
  Report Type: Spontaneous
  Country: IN (occurrence: IN)
  Receive Date: 20210419
  Receipt Date: 20210419
  Transmission Date: 20210717
  Serious: Yes (Death)
  Sender: FDA-Public Use
  Company Number: IN-PFIZER INC-2019236789

PATIENT
  Age: 88 Year
  Sex: Female

DRUGS (1)
  1. PALBACE [Suspect]
     Active Substance: PALBOCICLIB
     Indication: BREAST CANCER METASTATIC
     Dosage: 125 MG, 1X/DAY
     Route: 048
     Dates: start: 20180719, end: 20201218

REACTIONS (5)
  - Death [Fatal]
  - Injection site pain [Unknown]
  - Back pain [Unknown]
  - Arthralgia [Unknown]
  - Injection site mass [Unknown]

NARRATIVE: CASE EVENT DATE: 20201218
